FAERS Safety Report 4643878-9 (Version None)
Quarter: 2005Q2

REPORT INFORMATION
  Report Type: 
  Country: None (occurrence: None)
  Receive Date: 20050425
  Receipt Date: 20050413
  Transmission Date: 20051028
  Serious: Yes (Other)
  Sender: FDA-Public Use
  Company Number: US-GLAXOSMITHKLINE-A0553948A

PATIENT
  Age: 73 Year
  Sex: Male
  Weight: 78 kg

DRUGS (4)
  1. CITRUCEL SUGAR-FREE SUSPENSION ORANGE [Suspect]
     Indication: CONSTIPATION
     Route: 048
     Dates: start: 19990101
  2. UNIVASC [Suspect]
     Indication: BLOOD PRESSURE
     Route: 048
     Dates: end: 20041201
  3. PLAVIX [Concomitant]
  4. REMINYL [Concomitant]

REACTIONS (2)
  - LOSS OF CONSCIOUSNESS [None]
  - SYNCOPE [None]
